FAERS Safety Report 7243984-9 (Version None)
Quarter: 2011Q1

REPORT INFORMATION
  Report Type: 
  Country: None (occurrence: None)
  Receive Date: 20110125
  Receipt Date: 20110118
  Transmission Date: 20110831
  Serious: Yes (Hospitalization)
  Sender: FDA-Public Use
  Company Number: US-BRISTOL-MYERS SQUIBB COMPANY-15496151

PATIENT
  Sex: Female

DRUGS (1)
  1. SPRYCEL [Suspect]
     Dosage: THERAPY:LAST TWO WEEKS
     Dates: start: 20110101

REACTIONS (4)
  - FALL [None]
  - ELECTROCARDIOGRAM QT PROLONGED [None]
  - HEADACHE [None]
  - ASTHENIA [None]
